FAERS Safety Report 16901513 (Version 3)
Quarter: 2020Q2

REPORT INFORMATION
  Report Type: Spontaneous
  Country: IT (occurrence: IT)
  Receive Date: 20191009
  Receipt Date: 20200502
  Transmission Date: 20200713
  Serious: Yes (Other)
  Sender: FDA-Public Use
  Company Number: IT-AUROBINDO-AUR-APL-2019-060396

PATIENT
  Age: 79 Year
  Sex: Male

DRUGS (1)
  1. AMIODARONE [Suspect]
     Active Substance: AMIODARONE
     Indication: ATRIAL FIBRILLATION
     Dosage: 400 MILLIGRAM, DAILY
     Route: 065

REACTIONS (7)
  - Lung disorder [Recovering/Resolving]
  - Total lung capacity decreased [Recovered/Resolved]
  - Pulmonary mass [Recovering/Resolving]
  - Pulmonary toxicity [Recovered/Resolved]
  - Interstitial lung disease [Recovered/Resolved]
  - Dyspnoea exertional [Recovered/Resolved]
  - Cough [Recovered/Resolved]
